FAERS Safety Report 23437893 (Version 1)
Quarter: 2024Q1

REPORT INFORMATION
  Report Type: Spontaneous
  Country: US (occurrence: None)
  Receive Date: 20240123
  Receipt Date: 20240123
  Transmission Date: 20240410
  Serious: Yes (Hospitalization)
  Sender: FDA-Public Use
  Company Number: None

PATIENT
  Age: 44 Year
  Sex: Female

DRUGS (1)
  1. KESIMPTA [Suspect]
     Active Substance: OFATUMUMAB
     Indication: Multiple sclerosis
     Dosage: OTHER FREQUENCY : EVERY 28 DAYS;?

REACTIONS (8)
  - Multiple sclerosis relapse [None]
  - Balance disorder [None]
  - Asthenia [None]
  - Pain [None]
  - Gait disturbance [None]
  - Myalgia [None]
  - Speech disorder [None]
  - Fatigue [None]

NARRATIVE: CASE EVENT DATE: 20240116
